FAERS Safety Report 5812657-9 (Version None)
Quarter: 2008Q3

REPORT INFORMATION
  Report Type: 
  Country: None (occurrence: None)
  Receive Date: 20080717
  Receipt Date: 20080708
  Transmission Date: 20090109
  Serious: Yes (Disabling)
  Sender: FDA-Public Use
  Company Number: GB-ALLERGAN-0808285US

PATIENT
  Sex: Female
  Weight: 70 kg

DRUGS (9)
  1. DYSPORT [Suspect]
     Indication: MUSCLE SPASTICITY
     Dosage: 250 UNITS, SINGLE
     Route: 030
     Dates: start: 20051128, end: 20051128
  2. ATORVASTATIN CALCIUM [Concomitant]
     Indication: BLOOD CHOLESTEROL INCREASED
     Dosage: 10 MG, QD
     Route: 048
  3. BACLOFEN [Concomitant]
     Indication: MUSCLE SPASTICITY
     Dosage: 10 MG, QD
     Route: 048
  4. FLUOXETINE [Concomitant]
     Indication: DEPRESSION
     Dosage: 10 MG, QD
     Route: 048
  5. HYPROMELLOSE [Concomitant]
     Indication: DRUG USE FOR UNKNOWN INDICATION
     Route: 047
  6. OMEPRAZOLE [Concomitant]
     Indication: GASTRIC ULCER
     Dosage: 20 MG, QD
     Route: 048
  7. CALCICHEW D3 [Concomitant]
     Indication: OSTEOPOROSIS
     Dosage: 2 DF, QD
     Route: 048
  8. RAMIPRIL [Concomitant]
     Indication: HYPERTENSION
     Dosage: 5 MG, QD
     Route: 048
  9. SENNA [Concomitant]
     Indication: CONSTIPATION
     Dosage: 1 DF, PRN

REACTIONS (2)
  - INJECTION SITE PAIN [None]
  - PAIN IN EXTREMITY [None]
